FAERS Safety Report 8143246-1 (Version None)
Quarter: 2012Q1

REPORT INFORMATION
  Report Type: 
  Country: None (occurrence: None)
  Receive Date: 20120217
  Receipt Date: 20120213
  Transmission Date: 20120608
  Serious: Yes (Hospitalization)
  Sender: FDA-Public Use
  Company Number: US-PFIZER INC-2012039205

PATIENT
  Sex: Female
  Weight: 104 kg

DRUGS (2)
  1. FAMOTIDINE [Concomitant]
     Indication: ABDOMINAL DISCOMFORT
     Dosage: 20 MG, 2X/DAY
  2. CELEBREX [Suspect]
     Indication: ARTHRITIS
     Dosage: 200 MG,DAILY
     Route: 048

REACTIONS (4)
  - HEART RATE INCREASED [None]
  - BLOOD PRESSURE ABNORMAL [None]
  - BLOOD CHOLESTEROL ABNORMAL [None]
  - FEELING ABNORMAL [None]
